FAERS Safety Report 17536374 (Version 2)
Quarter: 2020Q1

REPORT INFORMATION
  Report Type: Report from Study
  Country: None (occurrence: CH)
  Receive Date: 20200313
  Receipt Date: 20200325
  Transmission Date: 20200409
  Serious: Yes (Hospitalization)
  Sender: FDA-Public Use
  Company Number: CH-ABBVIE-20K-151-3313852-00

PATIENT
  Age: 71 Year
  Sex: Male

DRUGS (3)
  1. DUODOPA [Suspect]
     Active Substance: CARBIDOPA\LEVODOPA
     Indication: PARKINSON^S DISEASE
     Route: 050
     Dates: start: 20180628, end: 20191207
  2. DUODOPA [Suspect]
     Active Substance: CARBIDOPA\LEVODOPA
     Dosage: MD: 7.0 ML/H, CDR: 3.7 ML/H, CNR 0 ML/H, ED: 1.0 ML?FREQUENCY TEXT - 16 H THERAPY
     Route: 050
     Dates: start: 20191207, end: 20191208
  3. DUODOPA [Suspect]
     Active Substance: CARBIDOPA\LEVODOPA
     Dosage: MD: 7.0 ML/H, CDR : 3.3 ML/H, CNR 0 ML/H, ED: 1.0 ML?FREQUENCY TEXT -16 H THERAPY
     Route: 050
     Dates: start: 20191208

REACTIONS (2)
  - Pubis fracture [Unknown]
  - Fall [Unknown]

NARRATIVE: CASE EVENT DATE: 202003
